FAERS Safety Report 5294985-1 (Version None)
Quarter: 2007Q2

REPORT INFORMATION
  Report Type: 
  Country: None (occurrence: None)
  Receive Date: 20070412
  Receipt Date: 20070401
  Transmission Date: 20071010
  Serious: Yes (Hospitalization)
  Sender: FDA-Public Use
  Company Number: GB-ROCHE-492213

PATIENT
  Age: 43 Year
  Sex: Female
  Weight: 112.4 kg

DRUGS (4)
  1. XENICAL [Suspect]
     Indication: OBESITY
     Route: 048
     Dates: start: 20060519, end: 20070126
  2. FLUOXETINE [Concomitant]
     Indication: ANTIDEPRESSANT THERAPY
  3. TRAMADOL HCL [Concomitant]
     Indication: PAIN
  4. PARACETAMOL [Concomitant]
     Indication: PAIN

REACTIONS (2)
  - CHOLECYSTECTOMY [None]
  - LIVER DISORDER [None]
